FAERS Safety Report 10681764 (Version 1)
Quarter: 2014Q4

REPORT INFORMATION
  Report Type: Spontaneous
  Country: FR (occurrence: FR)
  Receive Date: 20141230
  Receipt Date: 20141230
  Transmission Date: 20150529
  Serious: Yes (Hospitalization, Other)
  Sender: FDA-Public Use
  Company Number: FR-TEVA-531108ISR

PATIENT
  Age: 57 Year
  Sex: Female

DRUGS (1)
  1. ESTREVA [Suspect]
     Active Substance: ESTRADIOL
     Indication: MENOPAUSE
     Route: 048
     Dates: start: 2012, end: 20140811

REACTIONS (10)
  - Hemianopia [Unknown]
  - Malaise [Unknown]
  - Hemiplegia [Unknown]
  - Somnolence [Unknown]
  - Neurologic neglect syndrome [Unknown]
  - Epistaxis [Unknown]
  - Ischaemic stroke [Recovered/Resolved with Sequelae]
  - Dysarthria [Unknown]
  - VIIth nerve paralysis [Unknown]
  - Aphasia [Unknown]

NARRATIVE: CASE EVENT DATE: 20140811
